FAERS Safety Report 10671077 (Version 1)
Quarter: 2014Q4

REPORT INFORMATION
  Report Type: Spontaneous
  Country: US (occurrence: US)
  Receive Date: 20141223
  Receipt Date: 20141223
  Transmission Date: 20150529
  Serious: Yes (Disabling, Other)
  Sender: FDA-Public Use
  Company Number: US-SUN PHARMACEUTICAL INDUSTRIES LTD-2014SUN02877

PATIENT

DRUGS (3)
  1. DIURETIC [Concomitant]
     Active Substance: UNSPECIFIED INGREDIENT
     Dosage: 1 ML PER THREE WEEKS
     Route: 030
  2. SYNTHROID [Concomitant]
     Active Substance: LEVOTHYROXINE SODIUM
  3. TESTOSTERONE  CYPIONATE INJECTION; 100 MG/ML [Suspect]
     Active Substance: TESTOSTERONE CYPIONATE
     Indication: BLOOD TESTOSTERONE DECREASED
     Dosage: 1 ML, PER THREE WEEKS, IM IN QUADRICEPS MUSCLE
     Route: 030

REACTIONS (2)
  - Tendon rupture [Recovered/Resolved with Sequelae]
  - Hair growth abnormal [Not Recovered/Not Resolved]
